FAERS Safety Report 21678787 (Version 1)
Quarter: 2022Q4

REPORT INFORMATION
  Report Type: Spontaneous
  Country: AU (occurrence: AU)
  Receive Date: 20221204
  Receipt Date: 20221204
  Transmission Date: 20230112
  Serious: No
  Sender: FDA-Public Use
  Company Number: AU-LUPIN PHARMACEUTICALS INC.-2022-14004

PATIENT
  Age: 17 Year
  Sex: Female

DRUGS (8)
  1. LURASIDONE HYDROCHLORIDE [Suspect]
     Active Substance: LURASIDONE HYDROCHLORIDE
     Indication: Borderline personality disorder
     Dosage: 40 MG
     Route: 065
  2. RISPERIDONE [Suspect]
     Active Substance: RISPERIDONE
     Indication: Borderline personality disorder
     Dosage: UNK
     Route: 065
  3. RISPERIDONE [Suspect]
     Active Substance: RISPERIDONE
     Indication: Depression
  4. PALIPERIDONE [Suspect]
     Active Substance: PALIPERIDONE
     Indication: Borderline personality disorder
     Dosage: UNK
     Route: 065
  5. PALIPERIDONE [Suspect]
     Active Substance: PALIPERIDONE
     Indication: Depression
  6. QUETIAPINE [Concomitant]
     Active Substance: QUETIAPINE
     Indication: Borderline personality disorder
     Dosage: UNK
     Route: 065
  7. QUETIAPINE [Concomitant]
     Active Substance: QUETIAPINE
     Indication: Depression
  8. LAMOTRIGINE [Concomitant]
     Active Substance: LAMOTRIGINE
     Indication: Mood altered
     Dosage: 200 MG, QD
     Route: 065

REACTIONS (3)
  - Galactorrhoea [Unknown]
  - Drug ineffective for unapproved indication [Unknown]
  - Off label use [Unknown]
